FAERS Safety Report 25141534 (Version 2)
Quarter: 2025Q2

REPORT INFORMATION
  Report Type: Spontaneous
  Country: US (occurrence: US)
  Receive Date: 20250331
  Receipt Date: 20250411
  Transmission Date: 20250716
  Serious: No
  Sender: FRESENIUS KABI
  Company Number: US-FreseniusKabi-FK202504812

PATIENT
  Age: 75 Year
  Sex: Male
  Weight: 101.7 kg

DRUGS (7)
  1. DIPRIVAN [Suspect]
     Active Substance: PROPOFOL
     Indication: Sedative therapy
     Route: 042
     Dates: start: 20250319, end: 20250319
  2. TORADOL [Concomitant]
     Active Substance: KETOROLAC TROMETHAMINE
     Indication: Product used for unknown indication
  3. LIDOCAINE [Concomitant]
     Active Substance: LIDOCAINE
     Indication: Product used for unknown indication
  4. Nozin [Concomitant]
     Indication: Product used for unknown indication
  5. PEPCID [Concomitant]
     Active Substance: FAMOTIDINE
     Indication: Product used for unknown indication
  6. ANCEF [Concomitant]
     Active Substance: CEFAZOLIN SODIUM
     Indication: Product used for unknown indication
  7. LR IV fluids [Concomitant]
     Indication: Product used for unknown indication
     Route: 042

REACTIONS (1)
  - Chills [Recovered/Resolved]

NARRATIVE: CASE EVENT DATE: 20250319
